FAERS Safety Report 4834443-9 (Version None)
Quarter: 2005Q4

REPORT INFORMATION
  Report Type: 
  Country: None (occurrence: None)
  Receive Date: 20051122
  Receipt Date: 20041102
  Transmission Date: 20060501
  Serious: No
  Sender: FDA-Public Use
  Company Number: US-BRISTOL-MYERS SQUIBB COMPANY-12754180

PATIENT
  Sex: Male
  Weight: 79 kg

DRUGS (5)
  1. PRAVACHOL [Suspect]
     Indication: BLOOD CHOLESTEROL INCREASED
     Route: 048
  2. METOPROLOL [Concomitant]
  3. DILTIAZEM HCL [Concomitant]
  4. ISOSORBIDE MONONITRATE [Concomitant]
  5. VITAMINS [Concomitant]

REACTIONS (1)
  - DYSKINESIA [None]
